FAERS Safety Report 16482988 (Version 1)
Quarter: 2019Q2

REPORT INFORMATION
  Report Type: Spontaneous
  Country: US (occurrence: US)
  Receive Date: 20190627
  Receipt Date: 20190627
  Transmission Date: 20190711
  Serious: No
  Sender: FDA-Public Use
  Company Number: US-009507513-1906USA010069

PATIENT
  Age: 71 Year
  Sex: Female

DRUGS (2)
  1. ESTRADIOL. [Concomitant]
     Active Substance: ESTRADIOL
     Dosage: UNK
  2. BELSOMRA [Suspect]
     Active Substance: SUVOREXANT
     Indication: INSOMNIA
     Dosage: ONE PILL A NIGHT
     Route: 048
     Dates: start: 20190606, end: 20190614

REACTIONS (6)
  - Rash [Recovering/Resolving]
  - Product quality issue [Unknown]
  - Product dose omission [Unknown]
  - Nightmare [Recovering/Resolving]
  - Product storage error [Unknown]
  - Swollen tongue [Recovering/Resolving]

NARRATIVE: CASE EVENT DATE: 201906
